FAERS Safety Report 5749917-6 (Version None)
Quarter: 2008Q2

REPORT INFORMATION
  Report Type: 
  Country: None (occurrence: None)
  Receive Date: 20080520
  Receipt Date: 20080520
  Transmission Date: 20081010
  Serious: Yes (Disabling)
  Sender: FDA-Public Use
  Company Number: None

PATIENT
  Age: 64 Year
  Sex: Female
  Weight: 70.3075 kg

DRUGS (8)
  1. LISINOPRIL [Suspect]
     Indication: DIABETES MELLITUS
     Dosage: 40 MG 1 IN AM  PO;  20 MG 1/2 AT NIGHT
     Route: 048
     Dates: start: 20070504, end: 20080519
  2. LISINOPRIL [Suspect]
     Indication: HYPERTENSION
     Dosage: 40 MG 1 IN AM  PO;  20 MG 1/2 AT NIGHT
     Route: 048
     Dates: start: 20070504, end: 20080519
  3. LISINOPRIL [Suspect]
     Indication: PROPHYLAXIS
     Dosage: 40 MG 1 IN AM  PO;  20 MG 1/2 AT NIGHT
     Route: 048
     Dates: start: 20070504, end: 20080519
  4. LISINOPRIL [Suspect]
     Indication: RENAL DISORDER
     Dosage: 40 MG 1 IN AM  PO;  20 MG 1/2 AT NIGHT
     Route: 048
     Dates: start: 20070504, end: 20080519
  5. LISINOPRIL [Suspect]
     Indication: DIABETES MELLITUS
     Dosage: 40 MG 1 IN AM  PO;  20 MG 1/2 AT NIGHT
     Route: 048
     Dates: start: 20070504, end: 20080519
  6. LISINOPRIL [Suspect]
     Indication: HYPERTENSION
     Dosage: 40 MG 1 IN AM  PO;  20 MG 1/2 AT NIGHT
     Route: 048
     Dates: start: 20070504, end: 20080519
  7. LISINOPRIL [Suspect]
     Indication: PROPHYLAXIS
     Dosage: 40 MG 1 IN AM  PO;  20 MG 1/2 AT NIGHT
     Route: 048
     Dates: start: 20070504, end: 20080519
  8. LISINOPRIL [Suspect]
     Indication: RENAL DISORDER
     Dosage: 40 MG 1 IN AM  PO;  20 MG 1/2 AT NIGHT
     Route: 048
     Dates: start: 20070504, end: 20080519

REACTIONS (9)
  - INSOMNIA [None]
  - JOINT SWELLING [None]
  - MIDDLE INSOMNIA [None]
  - OEDEMA PERIPHERAL [None]
  - PAIN [None]
  - PHARMACEUTICAL PRODUCT COMPLAINT [None]
  - PRURITUS [None]
  - RASH [None]
  - SCAR [None]
